FAERS Safety Report 9147207 (Version 3)
Quarter: 2013Q3

REPORT INFORMATION
  Report Type: Spontaneous
  Country: JP (occurrence: None)
  Receive Date: 20130226
  Receipt Date: 20130703
  Transmission Date: 20140515
  Serious: Yes (Death)
  Sender: FDA-Public Use
  Company Number: JP-010967

PATIENT
  Age: 65 Year
  Sex: Male
  Weight: 76 kg

DRUGS (13)
  1. DEGARELIX [Suspect]
     Indication: PROSTATE CANCER
     Dosage: (240  MG  1X  SUBCUTANEOUS)?(11/27/2012  TO  11/27/2012)
     Route: 058
     Dates: start: 20121127, end: 20121127
  2. GRANISETRON [Concomitant]
  3. DEXAMETHASONE SODIUM PHOSPHATE [Concomitant]
  4. DOCETAXEL [Concomitant]
  5. ZOMETA [Concomitant]
  6. METASTRON [Concomitant]
  7. MOHRUS [Concomitant]
  8. PREDONINE [Concomitant]
  9. GASRICK D [Concomitant]
  10. CALCIUM LACTATE [Concomitant]
  11. FERROMIA [Concomitant]
  12. D ALFA [Concomitant]
  13. METHYCOBAL [Concomitant]

REACTIONS (4)
  - Pleural effusion [None]
  - Pneumonia [None]
  - Disease progression [None]
  - Prostate cancer [None]
